FAERS Safety Report 7051931-8 (Version None)
Quarter: 2010Q4

REPORT INFORMATION
  Report Type: 
  Country: None (occurrence: None)
  Receive Date: 20101019
  Receipt Date: 20101013
  Transmission Date: 20110411
  Serious: Yes (Other)
  Sender: FDA-Public Use
  Company Number: US-MERCK-1010USA01760

PATIENT
  Age: 70 Year
  Sex: Female

DRUGS (4)
  1. IVEMEND [Suspect]
     Indication: PROPHYLAXIS OF NAUSEA AND VOMITING
     Route: 042
  2. BENADRYL [Concomitant]
     Route: 065
  3. ALOXI [Concomitant]
     Route: 065
  4. DECADRON [Concomitant]
     Route: 048

REACTIONS (3)
  - BACK PAIN [None]
  - FLUSHING [None]
  - LOSS OF CONSCIOUSNESS [None]
